FAERS Safety Report 7112127-4 (Version None)
Quarter: 2010Q4

REPORT INFORMATION
  Report Type: 
  Country: None (occurrence: None)
  Receive Date: 20101119
  Receipt Date: 20100319
  Transmission Date: 20110411
  Serious: No
  Sender: FDA-Public Use
  Company Number: A0823499A

PATIENT
  Age: 71 Year
  Sex: Male

DRUGS (3)
  1. AVODART [Suspect]
     Indication: BENIGN PROSTATIC HYPERPLASIA
     Dosage: 1CAP PER DAY
     Route: 048
     Dates: start: 20070101
  2. TRICOR [Concomitant]
  3. LISINOPRIL [Concomitant]

REACTIONS (3)
  - CONDITION AGGRAVATED [None]
  - MICTURITION URGENCY [None]
  - PRODUCT QUALITY ISSUE [None]
